FAERS Safety Report 13504239 (Version 1)
Quarter: 2017Q2

REPORT INFORMATION
  Report Type: Spontaneous
  Country: CH (occurrence: CH)
  Receive Date: 20170502
  Receipt Date: 20170502
  Transmission Date: 20170830
  Serious: Yes (Hospitalization)
  Sender: FDA-Public Use
  Company Number: CH-MEDA-2009100019

PATIENT
  Age: 96 Year
  Sex: Female

DRUGS (6)
  1. ASPIRIN. [Concomitant]
     Active Substance: ASPIRIN
  2. NORVASC [Concomitant]
     Active Substance: AMLODIPINE BESYLATE
  3. TOREM [Suspect]
     Active Substance: TORSEMIDE
     Route: 048
     Dates: end: 20090827
  4. TRIATEC [Concomitant]
     Active Substance: RAMIPRIL
  5. DILATREND [Concomitant]
     Active Substance: CARVEDILOL
  6. NITRODERM [Concomitant]
     Active Substance: NITROGLYCERIN

REACTIONS (2)
  - Hypokalaemia [Recovered/Resolved]
  - Asthenia [Recovered/Resolved]

NARRATIVE: CASE EVENT DATE: 200908
